FAERS Safety Report 7688651-2 (Version None)
Quarter: 2011Q3

REPORT INFORMATION
  Report Type: 
  Country: None (occurrence: None)
  Receive Date: 20110817
  Receipt Date: 20110727
  Transmission Date: 20111222
  Serious: Yes (Hospitalization)
  Sender: FDA-Public Use
  Company Number: US-GLAXOSMITHKLINE-A0833676A

PATIENT
  Age: 51 Year
  Sex: Male

DRUGS (11)
  1. DIABETA [Concomitant]
  2. ELAVIL [Concomitant]
  3. ASPIRIN [Concomitant]
  4. AVANDIA [Suspect]
     Indication: TYPE 2 DIABETES MELLITUS
     Route: 048
     Dates: start: 19990501
  5. GLUCOTROL XL [Concomitant]
  6. LIPITOR [Concomitant]
  7. EFFEXOR XR [Concomitant]
  8. GLUCOPHAGE [Concomitant]
  9. AVANDAMET [Suspect]
     Indication: DIABETES MELLITUS
     Route: 048
  10. TOPROL-XL [Concomitant]
  11. GLUCOPHAGE XR [Concomitant]

REACTIONS (2)
  - CHEST DISCOMFORT [None]
  - CORONARY ARTERY OCCLUSION [None]
